FAERS Safety Report 8407113-8 (Version None)
Quarter: 2012Q2

REPORT INFORMATION
  Report Type: 
  Country: None (occurrence: None)
  Receive Date: 20120604
  Receipt Date: 20120524
  Transmission Date: 20120825
  Serious: Yes (Hospitalization, Other)
  Sender: FDA-Public Use
  Company Number: US-SANOFI-AVENTIS-2012SA029394

PATIENT
  Sex: Female

DRUGS (2)
  1. PLAVIX [Suspect]
     Dates: end: 20050101
  2. PLAVIX [Suspect]

REACTIONS (2)
  - SUBDURAL HAEMORRHAGE [None]
  - NERVOUS SYSTEM DISORDER [None]
